FAERS Safety Report 8225888-8 (Version None)
Quarter: 2012Q1

REPORT INFORMATION
  Report Type: 
  Country: None (occurrence: None)
  Receive Date: 20120321
  Receipt Date: 20120316
  Transmission Date: 20120608
  Serious: Yes (Hospitalization)
  Sender: FDA-Public Use
  Company Number: US-GILEAD-2012-0052085

PATIENT
  Sex: Male

DRUGS (2)
  1. LETAIRIS [Suspect]
     Indication: PULMONARY ARTERIAL HYPERTENSION
     Dosage: 10 MG, UNK
     Route: 048
     Dates: start: 20111223
  2. ADCIRCA [Concomitant]

REACTIONS (6)
  - FLUID RETENTION [None]
  - ISCHAEMIC CARDIOMYOPATHY [None]
  - HYPOXIA [None]
  - DYSPNOEA [None]
  - ACUTE RESPIRATORY FAILURE [None]
  - PULMONARY HYPERTENSION [None]
